FAERS Safety Report 6900764-9 (Version None)
Quarter: 2010Q3

REPORT INFORMATION
  Report Type: 
  Country: None (occurrence: None)
  Receive Date: 20100730
  Receipt Date: 20100723
  Transmission Date: 20110219
  Serious: Yes (Hospitalization)
  Sender: FDA-Public Use
  Company Number: TCI2010A02940

PATIENT
  Age: 47 Year
  Sex: Male

DRUGS (3)
  1. ACTOS [Suspect]
     Indication: TYPE 2 DIABETES MELLITUS
     Dosage: 15 MG (15 MG,1 - 2)
     Route: 048
     Dates: start: 20100614, end: 20100720
  2. KINEDAK (EPALRESTAT) [Suspect]
     Route: 048
     Dates: end: 20100720
  3. METHYCOOL (MECOBALAMIN) [Suspect]
     Route: 048
     Dates: end: 20100720

REACTIONS (7)
  - ALANINE AMINOTRANSFERASE INCREASED [None]
  - ASPARTATE AMINOTRANSFERASE INCREASED [None]
  - C-REACTIVE PROTEIN INCREASED [None]
  - PYREXIA [None]
  - RASH GENERALISED [None]
  - RENAL FAILURE ACUTE [None]
  - WHITE BLOOD CELL COUNT INCREASED [None]
